FAERS Safety Report 9270200 (Version 2)
Quarter: 2013Q2

REPORT INFORMATION
  Report Type: Spontaneous
  Country: JP (occurrence: JP)
  Receive Date: 20130503
  Receipt Date: 20130625
  Transmission Date: 20140414
  Serious: Yes (Hospitalization)
  Sender: FDA-Public Use
  Company Number: JP-GLAXOSMITHKLINE-B0881638A

PATIENT
  Age: 46 Year
  Sex: Female

DRUGS (7)
  1. LAMICTAL [Suspect]
     Indication: BIPOLAR DISORDER
     Dosage: 25MG PER DAY
     Route: 048
     Dates: start: 20130222, end: 20130307
  2. LAMICTAL [Suspect]
     Indication: BIPOLAR DISORDER
     Dosage: 25MG TWICE PER DAY
     Route: 048
     Dates: start: 20130308, end: 20130322
  3. LIMAS [Concomitant]
     Indication: AFFECT LABILITY
     Dosage: 200MG PER DAY
     Route: 048
     Dates: start: 201203
  4. SILECE [Concomitant]
     Indication: INSOMNIA
     Dosage: 2MG PER DAY
     Route: 048
     Dates: start: 201208
  5. SEROQUEL [Concomitant]
     Indication: AFFECT LABILITY
     Dosage: 25MG PER DAY
     Route: 048
     Dates: start: 201211
  6. MYSLEE [Concomitant]
     Indication: INSOMNIA
     Dosage: 10MG PER DAY
     Route: 048
     Dates: start: 201208
  7. MEILAX [Concomitant]
     Route: 048
     Dates: start: 201210, end: 20130308

REACTIONS (3)
  - Eczema [Recovered/Resolved with Sequelae]
  - Oral mucosa erosion [Recovered/Resolved with Sequelae]
  - Pigmentation disorder [Not Recovered/Not Resolved]
